FAERS Safety Report 9730495 (Version 2)
Quarter: 2013Q4

REPORT INFORMATION
  Report Type: Spontaneous
  Country: US (occurrence: US)
  Receive Date: 20131202
  Receipt Date: 20131210
  Transmission Date: 20140711
  Serious: Yes (Death, Hospitalization, Other)
  Sender: FDA-Public Use
  Company Number: US-PFIZER INC-2013339935

PATIENT
  Age: 63 Year
  Sex: Male

DRUGS (5)
  1. ENBREL [Suspect]
     Indication: PSORIATIC ARTHROPATHY
     Dosage: 50 MG, 2X/WEEK
     Dates: start: 20090101, end: 201211
  2. ENBREL [Suspect]
     Indication: PSORIASIS
  3. AMIODARONE HCL [Suspect]
     Indication: ATRIAL FIBRILLATION
     Dosage: UNK
  4. AMIODARONE HCL [Suspect]
     Indication: HAEMOCHROMATOSIS
  5. METHOTREXATE [Concomitant]
     Dosage: UNK

REACTIONS (8)
  - Death [Fatal]
  - Lung disorder [Recovered/Resolved]
  - Cardiac disorder [Recovered/Resolved]
  - Blood pressure decreased [Recovered/Resolved]
  - Atrial fibrillation [Recovered/Resolved]
  - Cough [Recovered/Resolved]
  - Arthralgia [Recovered/Resolved]
  - Psoriasis [Recovered/Resolved]
